FAERS Safety Report 8824390 (Version 1)
Quarter: 2012Q4

REPORT INFORMATION
  Report Type: Report from Study
  Country: JP (occurrence: JP)
  Receive Date: 20121004
  Receipt Date: 20121004
  Transmission Date: 20130627
  Serious: Yes (Other)
  Sender: FDA-Public Use
  Company Number: JP-009507513-2012SP027244

PATIENT
  Age: 70 Year
  Sex: Female
  Weight: 50 kg

DRUGS (11)
  1. PEGINTRON [Suspect]
     Indication: HEPATITIS C
     Dosage: 1.5 Microgram per kilogram, qw
     Route: 058
     Dates: start: 20120306, end: 20120306
  2. PEGINTRON [Suspect]
     Dosage: 0.8 Microgram per kilogram, qw
     Route: 058
     Dates: start: 20120312, end: 20120328
  3. PEGINTRON [Suspect]
     Dosage: 0.6 Microgram per kilogram, qw
     Route: 058
     Dates: start: 20120404, end: 20120725
  4. REBETOL [Suspect]
     Indication: HEPATITIS C
     Dosage: 400 mg, QD
     Route: 048
     Dates: start: 20120306, end: 20120508
  5. REBETOL [Suspect]
     Dosage: 200 mg, QD
     Route: 048
     Dates: start: 20120509, end: 20120725
  6. TELAVIC [Suspect]
     Indication: HEPATITIS C
     Dosage: 1500 mg, qd
     Route: 048
     Dates: start: 20120306, end: 20120530
  7. PARIET [Concomitant]
     Indication: GASTRIC ULCER
     Dosage: 10 mg, qd, FORMULATION: POR, OTHER PURPOSES- REFLUX OESOPHAGITIS
     Route: 048
  8. CLARITIN REDITABS [Concomitant]
     Indication: PROPHYLAXIS
     Dosage: 10 mg, QD
     Route: 048
  9. LIVALO [Concomitant]
     Indication: HYPERLIPIDAEMIA
     Dosage: 2 mg, qd, Formulation: POR
     Route: 048
  10. EPADEL S [Concomitant]
     Indication: HYPERLIPIDAEMIA
     Dosage: 1800 mg, qd, FORMULATION: POR
     Route: 048
  11. SODIUM FERROUS CITRATE [Concomitant]
     Indication: IRON DEFICIENCY ANAEMIA
     Dosage: 100 mg, qd, 1800 mg, qd, FORMULATION: POR
     Route: 048

REACTIONS (4)
  - Rash [Recovered/Resolved]
  - Anaemia [Not Recovered/Not Resolved]
  - Anaemia [Not Recovered/Not Resolved]
  - Anaemia [Not Recovered/Not Resolved]
